FAERS Safety Report 16225733 (Version 7)
Quarter: 2020Q4

REPORT INFORMATION
  Report Type: Spontaneous
  Country: US (occurrence: US)
  Receive Date: 20190422
  Receipt Date: 20201122
  Transmission Date: 20210113
  Serious: Yes (Congenital Anomaly, Other)
  Sender: FDA-Public Use
  Company Number: PHEH2019US017298

PATIENT
  Age: 0 Day
  Sex: Male

DRUGS (2)
  1. ZOFRAN [Suspect]
     Active Substance: ONDANSETRON HYDROCHLORIDE
     Indication: FOETAL EXPOSURE DURING PREGNANCY
     Route: 064
  2. ZOFRAN [Suspect]
     Active Substance: ONDANSETRON HYDROCHLORIDE
     Indication: FOETAL EXPOSURE DURING PREGNANCY
     Dosage: MOTHER DOSE: 08 MG, TID
     Route: 064

REACTIONS (26)
  - Injury [Unknown]
  - Nasopharyngitis [Unknown]
  - Premature baby [Unknown]
  - Respiratory distress [Unknown]
  - Jaundice neonatal [Unknown]
  - Rhinorrhoea [Unknown]
  - Atrial septal defect [Unknown]
  - Congenital anomaly [Unknown]
  - Abdominal pain upper [Unknown]
  - Anhedonia [Unknown]
  - Anxiety [Unknown]
  - Oropharyngeal pain [Unknown]
  - Conjunctivitis [Unknown]
  - Upper respiratory tract infection [Unknown]
  - Pyrexia [Unknown]
  - Macrocephaly [Unknown]
  - Emotional distress [Unknown]
  - Rhinitis allergic [Unknown]
  - Pulmonary valve stenosis congenital [Unknown]
  - Pain [Unknown]
  - Viral infection [Unknown]
  - Seasonal allergy [Unknown]
  - Foetal exposure during pregnancy [Unknown]
  - Wheezing [Unknown]
  - Headache [Unknown]
  - Vomiting [Unknown]

NARRATIVE: CASE EVENT DATE: 20021126
